FAERS Safety Report 8093402 (Version 11)
Quarter: 2013Q3

REPORT INFORMATION
  Report Type: Spontaneous
  Country: US (occurrence: US)
  Receive Date: 20110817
  Receipt Date: 20130927
  Transmission Date: 20140515
  Serious: Yes (Hospitalization, Disabling, Other)
  Sender: FDA-Public Use
  Company Number: US-JNJFOC-20110803029

PATIENT
  Age: 16 Year
  Sex: Female
  Weight: 48.99 kg

DRUGS (2)
  1. TRINESSA [Suspect]
     Indication: CONTRACEPTION
     Dosage: 1-1.5 YEARS, T DAILY
     Route: 048
     Dates: end: 20110721
  2. TRINESSA [Suspect]
     Indication: MENSTRUATION IRREGULAR
     Dosage: 1-1.5 YEARS, T DAILY
     Route: 048
     Dates: end: 20110721

REACTIONS (5)
  - Coagulopathy [Unknown]
  - Blood urine present [Unknown]
  - Cerebrovascular accident [Recovered/Resolved]
  - Off label use [Recovered/Resolved]
  - Contraindication to medical treatment [Recovered/Resolved]
